FAERS Safety Report 23961827 (Version 1)
Quarter: 2024Q2

REPORT INFORMATION
  Report Type: Spontaneous
  Country: ES (occurrence: None)
  Receive Date: 20240611
  Receipt Date: 20240611
  Transmission Date: 20240716
  Serious: Yes (Hospitalization)
  Sender: FDA-Public Use
  Company Number: ES-ROCHE-3573746

PATIENT
  Age: 43 Year
  Sex: Female

DRUGS (4)
  1. OCREVUS [Suspect]
     Active Substance: OCRELIZUMAB
     Indication: Multiple sclerosis
     Dosage: THE MOST RECENT DOSE WAS TAKEN IN MAR/2024
     Route: 065
     Dates: start: 2020
  2. EUTHYROX [Concomitant]
     Active Substance: LEVOTHYROXINE SODIUM
  3. AMOXICILLIN [Concomitant]
     Active Substance: AMOXICILLIN
  4. CLAVULANIC ACID [Concomitant]
     Active Substance: CLAVULANIC ACID

REACTIONS (2)
  - Leiomyoma [Unknown]
  - Pyelonephritis [Unknown]

NARRATIVE: CASE EVENT DATE: 20210101
